FAERS Safety Report 7570679-4 (Version None)
Quarter: 2011Q2

REPORT INFORMATION
  Report Type: 
  Country: None (occurrence: None)
  Receive Date: 20110624
  Receipt Date: 20110502
  Transmission Date: 20111010
  Serious: No
  Sender: FDA-Public Use
  Company Number: US-ALLERGAN-1106026US

PATIENT
  Age: 44 Year
  Sex: Female

DRUGS (3)
  1. LATISSE [Suspect]
     Indication: GROWTH OF EYELASHES
     Dosage: 1 GTT, QHS
     Route: 065
     Dates: start: 20110430, end: 20110501
  2. MASCARA [Concomitant]
  3. EYELINER [Concomitant]

REACTIONS (1)
  - PUPILLARY DISORDER [None]
